FAERS Safety Report 5198890-0 (Version None)
Quarter: 2007Q1

REPORT INFORMATION
  Report Type: 
  Country: None (occurrence: None)
  Receive Date: 20070104
  Receipt Date: 20061222
  Transmission Date: 20070707
  Serious: Yes (Disabling)
  Sender: FDA-Public Use
  Company Number: PHBS2006CH19823

PATIENT
  Age: 63 Year
  Sex: Female

DRUGS (10)
  1. THALIDOMIDE [Concomitant]
     Indication: MULTIPLE MYELOMA
     Route: 048
     Dates: start: 20060701
  2. MELPHALAN [Concomitant]
     Route: 065
     Dates: start: 20040701
  3. ZOMETA [Suspect]
     Indication: MULTIPLE MYELOMA
     Dosage: 4 MG, PER MONTH
     Route: 042
     Dates: start: 20040101, end: 20051201
  4. DEXAMETHASONE [Suspect]
  5. DEXAMETHASONE [Suspect]
     Route: 042
     Dates: start: 20040101
  6. DOXORUBICIN HCL [Suspect]
     Route: 042
     Dates: start: 20040101
  7. VINCRISTINE [Suspect]
     Route: 042
     Dates: start: 20040101
  8. DEXAMETHASONE [Concomitant]
     Route: 048
     Dates: start: 20060701
  9. HEMATOPOETIC PROGENITOR CELLS HUMAN [Concomitant]
     Dosage: AUTOLOGOUS STEM CELL TRANSPLANTATION
     Route: 065
     Dates: start: 20040101
  10. HEMATOPOETIC PROGENITOR CELLS HUMAN [Concomitant]
     Dates: start: 20060101

REACTIONS (2)
  - OSTEONECROSIS [None]
  - WOUND DEBRIDEMENT [None]
